FAERS Safety Report 8724834 (Version 2)
Quarter: 2012Q4

REPORT INFORMATION
  Report Type: 
  Country: US (occurrence: US)
  Receive Date: 20120815
  Receipt Date: 20120914
  Transmission Date: 20130627
  Serious: Yes (Other)
  Sender: FDA-Public Use
  Company Number: US-PFIZER INC-2012194555

PATIENT
  Age: 56 Year
  Sex: Female
  Weight: 70.3 kg

DRUGS (9)
  1. LYRICA [Suspect]
     Indication: CONVULSION
     Dosage: 75 mg, Daily
     Route: 048
     Dates: end: 201207
  2. LYRICA [Suspect]
     Indication: MIGRAINE
  3. LYRICA [Suspect]
     Indication: BACK PAIN
  4. NEXIUM [Concomitant]
     Indication: ULCER
     Dosage: 40 mg, daily
  5. TEGRETOL XR [Concomitant]
     Indication: CONVULSION
     Dosage: 800 mg, daily
     Route: 048
  6. AMITRIPTYLINE [Concomitant]
     Indication: BACK PAIN
     Dosage: 25 mg, daily
  7. AMITRIPTYLINE [Concomitant]
     Indication: MIGRAINE
  8. ADVIL PM [Concomitant]
     Indication: BACK PAIN
     Dosage: UNK, daily at night
  9. BACLOFEN [Concomitant]
     Indication: BACK PAIN
     Dosage: 20 mg, daily
     Route: 048

REACTIONS (4)
  - Off label use [Unknown]
  - Movement disorder [Not Recovered/Not Resolved]
  - Ankle fracture [Unknown]
  - Pain [Not Recovered/Not Resolved]
